FAERS Safety Report 14402061 (Version 3)
Quarter: 2018Q1

REPORT INFORMATION
  Report Type: Spontaneous
  Country: IN (occurrence: IN)
  Receive Date: 20180117
  Receipt Date: 20180227
  Transmission Date: 20180509
  Serious: Yes (Life-Threatening)
  Sender: FDA-Public Use
  Company Number: IN-ELI_LILLY_AND_COMPANY-IN201801006693

PATIENT
  Age: 64 Year
  Sex: Female
  Weight: 55 kg

DRUGS (2)
  1. ERBITUX [Suspect]
     Active Substance: CETUXIMAB
     Indication: LIP AND/OR ORAL CAVITY CANCER
     Dosage: 500 MG, UNKNOWN
     Route: 042
     Dates: start: 20171215, end: 20171215
  2. AVIL                               /00085102/ [Concomitant]
     Indication: PREMEDICATION
     Dosage: 1 AMPOULE, UNKNOWN
     Route: 042
     Dates: start: 20171215, end: 20171215

REACTIONS (3)
  - Discomfort [Recovered/Resolved]
  - Cyanosis [Recovered/Resolved]
  - Chest pain [Recovered/Resolved]

NARRATIVE: CASE EVENT DATE: 20171215
